FAERS Safety Report 14479469 (Version 2)
Quarter: 2018Q1

REPORT INFORMATION
  Report Type: Spontaneous
  Country: US (occurrence: US)
  Receive Date: 20180202
  Receipt Date: 20180326
  Transmission Date: 20180509
  Serious: No
  Sender: FDA-Public Use
  Company Number: US-ASTRAZENECA-2018SE12571

PATIENT
  Age: 22363 Day
  Sex: Female
  Weight: 75.8 kg

DRUGS (1)
  1. SYMBICORT [Suspect]
     Active Substance: BUDESONIDE\FORMOTEROL FUMARATE DIHYDRATE
     Indication: ASTHMA
     Dosage: 160/4.5 MCG TWO INHALATIONS TWO TIMES A DAY
     Route: 055
     Dates: start: 2017

REACTIONS (5)
  - Intentional device misuse [Unknown]
  - Wrong technique in device usage process [Unknown]
  - Off label use of device [Unknown]
  - Device malfunction [Unknown]
  - Asthma [Unknown]

NARRATIVE: CASE EVENT DATE: 20180127
